FAERS Safety Report 5001059-3 (Version None)
Quarter: 2006Q2

REPORT INFORMATION
  Report Type: 
  Country: None (occurrence: None)
  Receive Date: 20060512
  Receipt Date: 20060509
  Transmission Date: 20061013
  Serious: Yes (Hospitalization, Other)
  Sender: FDA-Public Use
  Company Number: DE-GLAXOSMITHKLINE-D0049667A

PATIENT
  Sex: Female

DRUGS (2)
  1. VIANI [Suspect]
     Route: 055
  2. THYROXINE [Concomitant]
     Route: 065

REACTIONS (2)
  - HEPATIC FAILURE [None]
  - RESTLESSNESS [None]
